FAERS Safety Report 9772337 (Version 1)
Quarter: 2013Q4

REPORT INFORMATION
  Report Type: Spontaneous
  Country: US (occurrence: US)
  Receive Date: 20131219
  Receipt Date: 20131219
  Transmission Date: 20140711
  Serious: Yes (Other)
  Sender: FDA-Public Use
  Company Number: US-NOVOPROD-395432

PATIENT
  Age: 5 Year
  Sex: Female

DRUGS (2)
  1. NORDITROPIN FLEXPRO 10 MG/ML [Suspect]
     Indication: GROWTH HORMONE DEFICIENCY
     Dosage: 0.7 MG (6 DAYS PER WEEK)
     Route: 058
  2. NORDITROPIN FLEXPRO 10 MG/ML [Suspect]
     Dosage: 1.3 MG (6 DAYS PER WEEK)
     Route: 058

REACTIONS (1)
  - Syringomyelia [Recovered/Resolved]
